FAERS Safety Report 23388818 (Version 1)
Quarter: 2024Q1

REPORT INFORMATION
  Report Type: Report from Study
  Country: CA (occurrence: CA)
  Receive Date: 20240110
  Receipt Date: 20240110
  Transmission Date: 20240410
  Serious: Yes (Other)
  Sender: FDA-Public Use
  Company Number: CA-BIOGEN-2024BI01244198

PATIENT
  Sex: Female

DRUGS (3)
  1. TYSABRI [Suspect]
     Active Substance: NATALIZUMAB
     Indication: Multiple sclerosis
     Route: 050
     Dates: start: 20121129
  2. PREGABALIN [Interacting]
     Active Substance: PREGABALIN
     Indication: Back pain
     Route: 050
  3. AMANTADINE [Suspect]
     Active Substance: AMANTADINE
     Indication: Back pain
     Route: 050

REACTIONS (2)
  - Depression suicidal [Not Recovered/Not Resolved]
  - Drug interaction [Not Recovered/Not Resolved]
